FAERS Safety Report 6575200-5 (Version None)
Quarter: 2010Q1

REPORT INFORMATION
  Report Type: 
  Country: None (occurrence: None)
  Receive Date: 20100209
  Receipt Date: 20100201
  Transmission Date: 20100710
  Serious: Yes (Death, Other)
  Sender: FDA-Public Use
  Company Number: US-BAYER-200919451GPV

PATIENT
  Age: 60 Year
  Sex: Female

DRUGS (2)
  1. MAGNEVIST [Suspect]
     Indication: NUCLEAR MAGNETIC RESONANCE IMAGING
     Dosage: 130 ML IN 7 DOSES OVER 16 MONTHS
     Route: 042
  2. EPO [Concomitant]

REACTIONS (5)
  - ARTERIAL THROMBOSIS [None]
  - CEREBRAL INFARCTION [None]
  - EMBOLISM [None]
  - NEPHROCALCINOSIS [None]
  - NEPHROGENIC SYSTEMIC FIBROSIS [None]
